FAERS Safety Report 8887586 (Version 1)
Quarter: 2012Q4

REPORT INFORMATION
  Report Type: Spontaneous
  Country: US (occurrence: None)
  Receive Date: 20121106
  Receipt Date: 20121106
  Transmission Date: 20130627
  Serious: Yes (Other)
  Sender: FDA-Public Use
  Company Number: None

PATIENT
  Age: 63 Year
  Sex: Female
  Weight: 82.56 kg

DRUGS (1)
  1. CORTISONE [Suspect]
     Indication: MENISCUS TEAR OF KNEE
     Dosage: injection
     Dates: start: 20120423, end: 20121105

REACTIONS (9)
  - Urticaria [None]
  - Blister [None]
  - Scar [None]
  - Product contamination [None]
  - Anaemia [None]
  - Gastrointestinal haemorrhage [None]
  - Swelling face [None]
  - Local swelling [None]
  - Poor quality drug administered [None]
